FAERS Safety Report 23226502 (Version 1)
Quarter: 2023Q4

REPORT INFORMATION
  Report Type: Spontaneous
  Country: GB (occurrence: GB)
  Receive Date: 20231124
  Receipt Date: 20231124
  Transmission Date: 20240110
  Serious: Yes (Hospitalization, Other)
  Sender: FDA-Public Use
  Company Number: GB-Merck Healthcare KGaA-2023486663

PATIENT
  Age: 33 Year
  Sex: Female

DRUGS (5)
  1. METFORMIN HYDROCHLORIDE [Suspect]
     Active Substance: METFORMIN HYDROCHLORIDE
     Indication: Gestational diabetes
     Dosage: 2 GRAM DAILY; 1G TWICE A DAY
     Route: 065
  2. METFORMIN HYDROCHLORIDE [Suspect]
     Active Substance: METFORMIN HYDROCHLORIDE
     Dosage: UNKNOWN
     Route: 065
  3. HUMALOG [Suspect]
     Active Substance: INSULIN LISPRO
     Indication: Gestational diabetes
     Dosage: 24 INTERNATIONAL UNIT(S), 3 EVERY 1 DAY WITH MEALS
     Route: 065
  4. ISOPHANE INSULIN [Suspect]
     Active Substance: INSULIN NOS
     Indication: Gestational diabetes
     Dosage: 108 IU (INTERNATIONAL UNIT) DAILY; 54 INTERNATIONAL UNIT(S), 2 EVERY 1 DAY
     Route: 065
  5. INSULIN HUMAN [Suspect]
     Active Substance: INSULIN HUMAN
     Indication: Gestational diabetes
     Dosage: 54 INTERNATIONAL UNIT(S), 2 EVERY 1 DAY
     Route: 065

REACTIONS (5)
  - Hypoglycaemia [Not Recovered/Not Resolved]
  - Insulinoma [Unknown]
  - Blood insulin increased [Recovering/Resolving]
  - Insulin C-peptide decreased [Unknown]
  - Maternal exposure during pregnancy [Unknown]
